FAERS Safety Report 4823442-9 (Version None)
Quarter: 2005Q4

REPORT INFORMATION
  Report Type: 
  Country: None (occurrence: None)
  Receive Date: 20051107
  Receipt Date: 20051025
  Transmission Date: 20060501
  Serious: Yes (Other)
  Sender: FDA-Public Use
  Company Number: 2005147138

PATIENT
  Age: 85 Year
  Sex: Female
  Weight: 46.2669 kg

DRUGS (5)
  1. ROLAIDS [Suspect]
     Indication: GLOSSODYNIA
     Dosage: ORAL
     Route: 048
  2. DIPHENHYDRAMINE HCL [Concomitant]
  3. DOCUSATE CALCIUM (DOCUSATE CALCIUM) [Concomitant]
  4. MAGNESIUM HYDROXIDE (MAGNESIUM HYDROXIDE) [Concomitant]
  5. WARFARIN SODIUM [Concomitant]

REACTIONS (2)
  - CONSTIPATION [None]
  - MYOCARDIAL INFARCTION [None]
